FAERS Safety Report 14343939 (Version 5)
Quarter: 2018Q2

REPORT INFORMATION
  Report Type: Report from Study
  Country: US (occurrence: US)
  Receive Date: 20180102
  Receipt Date: 20180614
  Transmission Date: 20180711
  Serious: Yes (Death, Disabling)
  Sender: FDA-Public Use
  Company Number: US-ACTELION-A-US2017-164703

PATIENT
  Age: 68 Year
  Sex: Female

DRUGS (1)
  1. OPSUMIT [Suspect]
     Active Substance: MACITENTAN
     Indication: PULMONARY ARTERIAL HYPERTENSION
     Dosage: 10 MG, QD
     Route: 048
     Dates: start: 20170914

REACTIONS (10)
  - Death [Fatal]
  - Swelling [Unknown]
  - Drug dose omission [Unknown]
  - Interstitial lung disease [Unknown]
  - Fluid retention [Unknown]
  - Oedema peripheral [Unknown]
  - Malaise [Unknown]
  - Pulmonary arterial hypertension [Unknown]
  - Oedema [Unknown]
  - Neoplasm malignant [Unknown]

NARRATIVE: CASE EVENT DATE: 201802
